FAERS Safety Report 7304834-5 (Version None)
Quarter: 2011Q1

REPORT INFORMATION
  Report Type: 
  Country: None (occurrence: None)
  Receive Date: 20110222
  Receipt Date: 20110209
  Transmission Date: 20110831
  Serious: Yes (Other)
  Sender: FDA-Public Use
  Company Number: FR-ELI_LILLY_AND_COMPANY-FR201102002692

PATIENT
  Age: 88 Year
  Sex: Female

DRUGS (7)
  1. FORTEO [Suspect]
     Indication: OSTEOPOROSIS
     Dosage: 20 UG, DAILY (1/D)
     Route: 058
     Dates: start: 20101101
  2. DILTIAZEM [Concomitant]
     Dosage: 1 D/F, DAILY (1/D)
     Route: 048
  3. SEROPLEX [Concomitant]
     Dosage: 20 MG, DAILY (1/D)
     Route: 048
  4. NEXIUM [Concomitant]
     Dosage: 60 MG, DAILY (1/D)
     Route: 048
  5. LOVENOX [Concomitant]
     Indication: THROMBOSIS PROPHYLAXIS
     Route: 058
     Dates: start: 20101101, end: 20110107
  6. DITROPAN [Concomitant]
     Dosage: 2 D/F, DAILY (1/D)
     Route: 048
  7. BIPERIDYS [Concomitant]
     Dosage: 3 D/F, DAILY (1/D)
     Route: 048

REACTIONS (1)
  - THROMBOPHLEBITIS [None]
